FAERS Safety Report 4797528-1 (Version None)
Quarter: 2005Q3

REPORT INFORMATION
  Report Type: 
  Country: None (occurrence: None)
  Receive Date: 20050929
  Receipt Date: 20050707
  Transmission Date: 20060218
  Serious: No
  Sender: FDA-Public Use
  Company Number: 05P-163-0304985-00

PATIENT
  Age: 37 Year
  Sex: Female
  Weight: 103 kg

DRUGS (3)
  1. HUMIRA [Suspect]
     Indication: RHEUMATOID ARTHRITIS
     Dosage: 40 MG, 1 IN 2 WK, SUBCUTANEOUS
     Route: 058
     Dates: start: 20050301
  2. METHOTREXATE [Concomitant]
  3. TYLENOL NO.4 [Concomitant]

REACTIONS (1)
  - SINUSITIS [None]
